FAERS Safety Report 6380140-0 (Version None)
Quarter: 2009Q3

REPORT INFORMATION
  Report Type: 
  Country: None (occurrence: None)
  Receive Date: 20090929
  Receipt Date: 20090923
  Transmission Date: 20100115
  Serious: Yes (Other)
  Sender: FDA-Public Use
  Company Number: RU-BAYER-200932662GPV

PATIENT
  Age: 48 Year
  Sex: Female

DRUGS (3)
  1. BETAFERON [Suspect]
     Indication: MULTIPLE SCLEROSIS
     Route: 058
     Dates: start: 20080101
  2. SIRDALUD [Concomitant]
     Indication: MUSCLE SPASTICITY
     Dosage: TOTAL DAILY DOSE: 2 MG
     Route: 048
  3. KETONAL [Concomitant]
     Indication: DRUG USE FOR UNKNOWN INDICATION
     Route: 048

REACTIONS (2)
  - MUSCLE SPASTICITY [None]
  - PYREXIA [None]
